FAERS Safety Report 6584250-4 (Version None)
Quarter: 2010Q1

REPORT INFORMATION
  Report Type: 
  Country: None (occurrence: None)
  Receive Date: 20100213
  Receipt Date: 20100213
  Transmission Date: 20100710
  Serious: Yes (Other)
  Sender: FDA-Public Use
  Company Number: None

PATIENT
  Age: 82 Year
  Sex: Male
  Weight: 68.9467 kg

DRUGS (3)
  1. OMEPRAZOLE [Suspect]
     Indication: ABDOMINAL DISCOMFORT
     Dosage: 20MG QD PO (DURATION: 3-YEARS PERIODICALLY)
     Route: 048
  2. ACIPHEX [Concomitant]
  3. RANITADINE [Concomitant]

REACTIONS (1)
  - PSEUDOMEMBRANOUS COLITIS [None]
